FAERS Safety Report 5397292-1 (Version None)
Quarter: 2007Q3

REPORT INFORMATION
  Report Type: 
  Country: None (occurrence: None)
  Receive Date: 20070723
  Receipt Date: 20070705
  Transmission Date: 20080115
  Serious: Yes (Disabling)
  Sender: FDA-Public Use
  Company Number: US020207

PATIENT
  Age: 32 Year
  Sex: Female

DRUGS (6)
  1. TRISENOX [Suspect]
     Indication: ACUTE PROMYELOCYTIC LEUKAEMIA
     Dosage: 9.15 MG QD INTRAVENOUS DRIP
     Route: 041
     Dates: start: 20070205, end: 20070309
  2. FEXOFENADINE HYDROCHLORIDE [Concomitant]
  3. RANITIDINE HYDROCHLORIDE [Concomitant]
  4. GEFARNATE [Concomitant]
  5. ETIZOLAM [Concomitant]
  6. ZOLPIDEM TARTRATE [Concomitant]

REACTIONS (7)
  - ALANINE AMINOTRANSFERASE INCREASED [None]
  - ASPARTATE AMINOTRANSFERASE INCREASED [None]
  - C-REACTIVE PROTEIN INCREASED [None]
  - ELECTROCARDIOGRAM QT PROLONGED [None]
  - HEPATIC FUNCTION ABNORMAL [None]
  - HYPOCALCAEMIA [None]
  - PANCYTOPENIA [None]
